FAERS Safety Report 8367464-2 (Version None)
Quarter: 2012Q2

REPORT INFORMATION
  Report Type: 
  Country: None (occurrence: None)
  Receive Date: 20120517
  Receipt Date: 20120223
  Transmission Date: 20120825
  Serious: No
  Sender: FDA-Public Use
  Company Number: US-GLAXOSMITHKLINE-A0967165A

PATIENT
  Age: 18 Year
  Sex: Female

DRUGS (3)
  1. VICODIN [Concomitant]
  2. VOTRIENT [Suspect]
     Indication: RENAL CELL CARCINOMA
     Dosage: 1TAB FOUR TIMES PER DAY
     Route: 048
     Dates: start: 20120216
  3. ZOFRAN [Concomitant]

REACTIONS (1)
  - NAUSEA [None]
